FAERS Safety Report 5003967-6 (Version None)
Quarter: 2006Q2

REPORT INFORMATION
  Report Type: 
  Country: None (occurrence: None)
  Receive Date: 20060515
  Receipt Date: 20060515
  Transmission Date: 20061013
  Serious: Yes (Other)
  Sender: FDA-Public Use
  Company Number: None

PATIENT
  Sex: Male
  Weight: 86.1834 kg

DRUGS (1)
  1. ZICAM NO-DRIP LIQUID NASAL GEL [Suspect]
     Indication: NASOPHARYNGITIS
     Dosage: 1 Q-TIP   ONCE FOR 5 SECONDS   NASAL
     Route: 045
     Dates: start: 20060425, end: 20060425

REACTIONS (4)
  - AGEUSIA [None]
  - ANOSMIA [None]
  - BURNING SENSATION [None]
  - LACRIMATION INCREASED [None]
